FAERS Safety Report 16767877 (Version 1)
Quarter: 2019Q4

REPORT INFORMATION
  Report Type: Spontaneous
  Country: US (occurrence: US)
  Receive Date: 20190902
  Receipt Date: 20190902
  Transmission Date: 20200122
  Serious: Yes (Life-Threatening)
  Sender: FDA-Public Use
  Company Number: None

PATIENT
  Sex: Female
  Weight: 86 kg

DRUGS (1)
  1. APETITO [CYPROHEPTADINE HYDROCHLORIDE] [Suspect]
     Active Substance: CYPROHEPTADINE HYDROCHLORIDE

REACTIONS (7)
  - Syncope [None]
  - Diplopia [None]
  - Hypersensitivity [None]
  - Erythema [None]
  - Dyspnoea [None]
  - Pruritus [None]
  - Chest pain [None]
